FAERS Safety Report 25390570 (Version 1)
Quarter: 2025Q2

REPORT INFORMATION
  Report Type: Spontaneous
  Country: US (occurrence: US)
  Receive Date: 20250603
  Receipt Date: 20250603
  Transmission Date: 20250716
  Serious: No
  Sender: PFIZER
  Company Number: US-PFIZER INC-PV202500066193

PATIENT
  Sex: Female
  Weight: 72.109 kg

DRUGS (22)
  1. PAXLOVID [Suspect]
     Active Substance: NIRMATRELVIR\RITONAVIR
     Indication: COVID-19 treatment
  2. LENVIMA [Suspect]
     Active Substance: LENVATINIB
     Dosage: 14 MG, DAILY (MANUFACTURER: EDI EISAI INC.)
     Route: 048
     Dates: start: 20250211
  3. AMLODIPINE [Concomitant]
     Active Substance: AMLODIPINE BESYLATE
  4. LISINOPRIL [Concomitant]
     Active Substance: LISINOPRIL
  5. ACETAMINOPHEN [Concomitant]
     Active Substance: ACETAMINOPHEN
  6. KEYTRUDA [Concomitant]
     Active Substance: PEMBROLIZUMAB
  7. ALLEGRA [Concomitant]
     Active Substance: FEXOFENADINE HYDROCHLORIDE
  8. METFORMIN HYDROCHLORIDE [Concomitant]
     Active Substance: METFORMIN HYDROCHLORIDE
  9. LIDOCAINE\PRILOCAINE [Concomitant]
     Active Substance: LIDOCAINE\PRILOCAINE
  10. FAMOTIDINE [Concomitant]
     Active Substance: FAMOTIDINE
  11. PROCHLORPERAZINE [Concomitant]
     Active Substance: PROCHLORPERAZINE
  12. ONDANSETRON [Concomitant]
     Active Substance: ONDANSETRON
  13. VITAMIN C [Concomitant]
     Active Substance: ASCORBIC ACID
  14. COLACE [Concomitant]
     Active Substance: DOCUSATE SODIUM
  15. PERCOCET [Concomitant]
     Active Substance: ACETAMINOPHEN\OXYCODONE HYDROCHLORIDE
  16. MINERALS\OMEGA-3 FATTY ACIDS\VITAMINS [Concomitant]
     Active Substance: MINERALS\OMEGA-3 FATTY ACIDS\VITAMINS
  17. MAGNESIUM [Concomitant]
     Active Substance: MAGNESIUM
  18. LEVOTHYROXINE [Concomitant]
     Active Substance: LEVOTHYROXINE
  19. IMODIUM [Concomitant]
     Active Substance: LOPERAMIDE HYDROCHLORIDE
  20. CARBAMAZEPINE [Concomitant]
     Active Substance: CARBAMAZEPINE
  21. CALCIUM [Concomitant]
     Active Substance: CALCIUM
  22. CLONAZEPAM [Concomitant]
     Active Substance: CLONAZEPAM

REACTIONS (2)
  - Drug hypersensitivity [Not Recovered/Not Resolved]
  - Dizziness [Not Recovered/Not Resolved]
